FAERS Safety Report 24142735 (Version 1)
Quarter: 2024Q3

REPORT INFORMATION
  Report Type: Report from Study
  Country: US (occurrence: None)
  Receive Date: 20240726
  Receipt Date: 20240726
  Transmission Date: 20241017
  Serious: Yes (Hospitalization)
  Sender: ASTRAZENECA
  Company Number: 2024A167456

PATIENT
  Sex: Female

DRUGS (1)
  1. FASENRA [Suspect]
     Active Substance: BENRALIZUMAB
     Indication: Asthma
     Route: 058

REACTIONS (6)
  - Oxygen saturation decreased [Unknown]
  - Liver disorder [Unknown]
  - Thyroid disorder [Unknown]
  - Feeling abnormal [Unknown]
  - Tremor [Unknown]
  - Inappropriate schedule of product administration [Unknown]
